FAERS Safety Report 4779781-3 (Version None)
Quarter: 2005Q3

REPORT INFORMATION
  Report Type: 
  Country: None (occurrence: None)
  Receive Date: 20050914
  Receipt Date: 20040917
  Transmission Date: 20060218
  Serious: Yes (Death)
  Sender: FDA-Public Use
  Company Number: 163-20785-04020622

PATIENT
  Age: 58 Year
  Sex: Male

DRUGS (2)
  1. THALOMID [Suspect]
     Indication: MULTIPLE MYELOMA
     Dosage: 200 MG, QD, ORAL
     Route: 048
     Dates: start: 20040101
  2. DEXAMETHASONE [Concomitant]

REACTIONS (9)
  - ABDOMINAL PAIN [None]
  - ANOREXIA [None]
  - ASTHENIA [None]
  - BLOOD LACTATE DEHYDROGENASE INCREASED [None]
  - DISEASE PROGRESSION [None]
  - DISTURBANCE IN ATTENTION [None]
  - NEUROPATHY [None]
  - PAIN [None]
  - PROTEIN TOTAL ABNORMAL [None]
